FAERS Safety Report 10142131 (Version 2)
Quarter: 2014Q2

REPORT INFORMATION
  Report Type: Report from Study
  Country: US (occurrence: US)
  Receive Date: 20140429
  Receipt Date: 20140429
  Transmission Date: 20141212
  Serious: Yes (Other)
  Sender: FDA-Public Use
  Company Number: PHEH2014US003466

PATIENT
  Age: 86 Year
  Sex: Male

DRUGS (116)
  1. EXELON PATCH [Suspect]
     Indication: DEMENTIA ALZHEIMER^S TYPE
     Dosage: 9.5 MG DAILY
     Route: 062
     Dates: start: 20130204, end: 20130803
  2. EXELON PATCH [Suspect]
     Dosage: 4.6 MG, DAILY
     Route: 062
     Dates: start: 20130807
  3. EXELON PATCH [Suspect]
     Dosage: UNK
     Route: 062
     Dates: start: 20130812, end: 20131210
  4. EXELON PATCH [Suspect]
     Dosage: 9.5 MG DAILY
     Route: 062
     Dates: start: 20140115
  5. NEXIUM//ESOMEPRAZOLE SODIUM [Concomitant]
     Dosage: 1 DF, QD
     Route: 048
  6. NEXIUM//ESOMEPRAZOLE SODIUM [Concomitant]
     Dosage: 40 MG, UNK
     Dates: start: 20070427
  7. NEXIUM//ESOMEPRAZOLE SODIUM [Concomitant]
     Dosage: 40 MG, UNK
     Dates: start: 20071227
  8. NEXIUM//ESOMEPRAZOLE SODIUM [Concomitant]
     Dosage: 40 MG, UNK
     Dates: start: 20080512
  9. NEXIUM//ESOMEPRAZOLE SODIUM [Concomitant]
     Dosage: 40 MG, UNK
     Dates: start: 20081103
  10. NEXIUM//ESOMEPRAZOLE SODIUM [Concomitant]
     Dosage: 40 MG, UNK
     Dates: start: 20090619
  11. NEXIUM//ESOMEPRAZOLE SODIUM [Concomitant]
     Dosage: 40 MG, UNK
     Dates: start: 20090903
  12. NEXIUM//ESOMEPRAZOLE SODIUM [Concomitant]
     Dosage: 40 MG, UNK
     Dates: start: 20091027
  13. NEXIUM//ESOMEPRAZOLE SODIUM [Concomitant]
     Dosage: 40 MG, UNK
     Dates: start: 20100614
  14. NEXIUM//ESOMEPRAZOLE SODIUM [Concomitant]
     Dosage: 40 MG, UNK
     Dates: start: 20101130
  15. NEXIUM//ESOMEPRAZOLE SODIUM [Concomitant]
     Dosage: 40 MG, UNK
     Dates: start: 20110330
  16. NEXIUM//ESOMEPRAZOLE SODIUM [Concomitant]
     Dosage: 40 MG, QD
     Route: 048
     Dates: start: 20111003
  17. NEXIUM//ESOMEPRAZOLE SODIUM [Concomitant]
     Dosage: 40 MG, QD
     Route: 048
     Dates: start: 20120105
  18. NEXIUM//ESOMEPRAZOLE SODIUM [Concomitant]
     Dosage: 40 MG, QD
     Route: 048
     Dates: start: 20120418
  19. NEXIUM//ESOMEPRAZOLE SODIUM [Concomitant]
     Dosage: 40 MG, QD
     Route: 048
     Dates: start: 20120612
  20. NEXIUM//ESOMEPRAZOLE SODIUM [Concomitant]
     Dosage: 40 MG, QD
     Route: 048
     Dates: start: 20120619
  21. NEXIUM//ESOMEPRAZOLE SODIUM [Concomitant]
     Dosage: 40 MG, QD
     Route: 048
     Dates: start: 20121026
  22. NEXIUM//ESOMEPRAZOLE SODIUM [Concomitant]
     Dosage: 40 MG, QD
     Route: 048
     Dates: start: 20130109
  23. NEXIUM//ESOMEPRAZOLE SODIUM [Concomitant]
     Dosage: 40 MG, QD
     Route: 048
     Dates: start: 20130408
  24. NEXIUM//ESOMEPRAZOLE SODIUM [Concomitant]
     Dosage: 40 MG, QD
     Route: 048
     Dates: start: 20130708
  25. NEXIUM//ESOMEPRAZOLE SODIUM [Concomitant]
     Dosage: 40 MG, QD
     Route: 048
     Dates: start: 20131010
  26. NEXIUM//ESOMEPRAZOLE SODIUM [Concomitant]
     Dosage: 40 MG, QD
     Route: 048
     Dates: start: 20140110
  27. SERTRALINE [Concomitant]
     Dosage: 0.5 TO 1 DF AS DIRECTED
     Route: 048
  28. SERTRALINE [Concomitant]
     Dosage: 0.5 TO 1 DF AS DIRECTED
     Route: 048
     Dates: start: 20111205
  29. SERTRALINE [Concomitant]
     Dosage: 0.5 TO 1 DF AS DIRECTED
     Route: 048
     Dates: start: 20120105
  30. SERTRALINE [Concomitant]
     Dosage: 0.5 TO 1 DF AS DIRECTED
     Route: 048
     Dates: start: 20120409
  31. SERTRALINE [Concomitant]
     Dosage: 0.5 TO 1 DF AS DIRECTED
     Route: 048
     Dates: start: 20120613
  32. SERTRALINE [Concomitant]
     Dosage: 0.5 TO 1 DF AS DIRECTED
     Route: 048
     Dates: start: 20121015
  33. SERTRALINE [Concomitant]
     Dosage: 0.5 TO 1 DF AS DIRECTED
     Route: 048
     Dates: start: 20130118
  34. SERTRALINE [Concomitant]
     Dosage: 0.5 TO 1 DF AS DIRECTED
     Route: 048
     Dates: start: 20130429
  35. SERTRALINE [Concomitant]
     Dosage: 0.5 TO 1 DF AS DIRECTED
     Route: 048
     Dates: start: 20130729
  36. SERTRALINE [Concomitant]
     Dosage: 0.5 TO 1 DF AS DIRECTED
     Route: 048
     Dates: start: 20131104
  37. SERTRALINE [Concomitant]
     Dosage: 0.5 TO 1 DF AS DIRECTED
     Route: 048
     Dates: start: 20140130
  38. TRAMADOL HCL [Concomitant]
     Indication: PAIN
     Dosage: 1 DF, QID
     Route: 048
  39. TRAMADOL HCL [Concomitant]
     Dosage: 50 MG, UNK
     Dates: start: 20101018
  40. TRAMADOL HCL [Concomitant]
     Dosage: 50 MG, UNK
     Dates: start: 20101203
  41. TRAMADOL HCL [Concomitant]
     Dosage: 50 MG, UNK
     Dates: start: 20110314
  42. TRAMADOL HCL [Concomitant]
     Dosage: 50 MG, UNK
     Dates: start: 20110420
  43. TRAMADOL HCL [Concomitant]
     Dosage: 1 DF (15 MG), QID
     Dates: start: 20110906
  44. TRAMADOL HCL [Concomitant]
     Dosage: 1 DF (15 MG), QID
     Dates: start: 20111019
  45. TRAMADOL HCL [Concomitant]
     Dosage: 1 DF (15 MG), QID
     Route: 048
     Dates: start: 20111205
  46. TRAMADOL HCL [Concomitant]
     Dosage: 1 DF (15 MG), QID
     Route: 048
     Dates: start: 20120116
  47. TRAMADOL HCL [Concomitant]
     Dosage: 1 DF (15 MG), QID
     Route: 048
     Dates: start: 20120612
  48. TRAMADOL HCL [Concomitant]
     Dosage: 1 DF (15 MG), QID
     Route: 048
     Dates: start: 20121107
  49. TRAMADOL HCL [Concomitant]
     Dosage: 1 DF (15 MG), QID
     Route: 048
     Dates: start: 20130220
  50. TRAMADOL HCL [Concomitant]
     Dosage: 1 DF (15 MG), QID
     Route: 048
     Dates: start: 20130506
  51. TRAMADOL HCL [Concomitant]
     Dosage: 1 DF (15 MG), QID
     Route: 048
     Dates: start: 20130905
  52. TRAMADOL HCL [Concomitant]
     Dosage: 1 DF (15 MG), QID
     Route: 048
     Dates: start: 20131030
  53. TRAMADOL HCL [Concomitant]
     Dosage: 1 DF (15 MG), QID
     Route: 048
     Dates: start: 20140214
  54. ARTHROTEC [Concomitant]
     Dosage: 75 MG
     Dates: start: 20041018
  55. ARTHROTEC [Concomitant]
     Dosage: 75 MG
     Dates: start: 20050421
  56. ARTHROTEC [Concomitant]
     Dosage: 75 MG
     Dates: start: 20051025
  57. ARTHROTEC [Concomitant]
     Dosage: 75 MG
     Dates: start: 20061101
  58. FACTIVE [Concomitant]
     Dosage: 320 MG
     Dates: start: 20050228
  59. PHENERGAN VC W/CODEINE [Concomitant]
     Dosage: UNK UKN, UNK
     Dates: start: 20050228
  60. KETEK [Concomitant]
     Dosage: 400 MG
     Dates: start: 20060125
  61. AUGMENTIN [Concomitant]
     Dosage: 875 MG
     Dates: start: 20070406
  62. VICODIN TUSS [Concomitant]
     Dosage: UNK
     Dates: start: 20070406
  63. ZOLOFT [Concomitant]
     Dosage: 100 MG
     Dates: start: 20070509
  64. ZOLOFT [Concomitant]
     Dosage: 100 MG
     Dates: start: 20080123
  65. ZOLOFT [Concomitant]
     Dosage: 100 MG
     Dates: start: 20080925
  66. ZOLOFT [Concomitant]
     Dosage: 100 MG
     Dates: start: 20090619
  67. ZOLOFT [Concomitant]
     Dosage: 100 MG
     Dates: start: 20090903
  68. ZOLOFT [Concomitant]
     Dosage: 100 MG
     Dates: start: 20091102
  69. ZOLOFT [Concomitant]
     Dosage: 100 MG
     Dates: start: 20100920
  70. ZOLOFT [Concomitant]
     Dosage: 100 MG
     Dates: start: 20110126
  71. DICLOFENAC [Concomitant]
     Dosage: 75 MG, UNK
     Dates: start: 20081120
  72. DICLOFENAC [Concomitant]
     Dosage: 75 MG, UNK
     Dates: start: 20100128
  73. DICLOFENAC [Concomitant]
     Dosage: 75 MG, UNK
     Dates: start: 20100402
  74. HYCODAN                                 /USA/ [Concomitant]
     Dosage: UNK UKN, UNK
     Dates: start: 20081219
  75. ZITHROMAX [Concomitant]
     Dosage: 250 MG, UNK
     Dates: start: 20081219
  76. TRILIPIX [Concomitant]
     Dosage: 135 MG, UNK
     Dates: start: 20100614
  77. TRILIPIX [Concomitant]
     Dosage: 135 MG, UNK
     Dates: start: 20101026
  78. TRILIPIX [Concomitant]
     Dosage: 135 MG, UNK
     Dates: start: 20110228, end: 20110712
  79. TRILIPIX [Concomitant]
     Dosage: 135 MG, QD
     Dates: start: 20110712, end: 20111109
  80. TRILIPIX [Concomitant]
     Dosage: 135 MG, QD
     Dates: start: 20111122, end: 20120321
  81. MELOXICAM [Concomitant]
     Indication: ARTHRITIS
     Dosage: 15 MG, UNK
     Dates: start: 20100621
  82. MELOXICAM [Concomitant]
     Dosage: 15 MG, UNK
     Dates: start: 20101101
  83. MELOXICAM [Concomitant]
     Dosage: 15 MG, UNK
     Dates: start: 20110330, end: 20110801
  84. MELOXICAM [Concomitant]
     Dosage: 1 DF, QD
     Dates: start: 20110801
  85. MELOXICAM [Concomitant]
     Dosage: 1 DF, QD
     Dates: start: 20120409, end: 20120608
  86. MELOXICAM [Concomitant]
     Dosage: 1 DF, QD
     Dates: start: 20130820, end: 20131215
  87. PREDNISONE [Concomitant]
     Dosage: 10 MG, UNK
     Dates: start: 20100630
  88. PREDNISONE [Concomitant]
     Dosage: 10 MG, UNK
     Dates: start: 20100820
  89. FLEXERIL [Concomitant]
     Dosage: 10 UKN, UNK
     Dates: start: 20101012
  90. RISPERDAL [Concomitant]
     Dosage: 0.5 MG, UNK
     Dates: start: 20110214
  91. SEROQUEL [Concomitant]
     Indication: DEMENTIA
     Dosage: 50 MG, UNK
     Dates: start: 20110228
  92. SEROQUEL [Concomitant]
     Dosage: 50 MG, UNK
     Dates: start: 20110420
  93. SEROQUEL [Concomitant]
     Dosage: 100 MG, UNK
     Dates: start: 20110419
  94. SEROQUEL [Concomitant]
     Dosage: 50 MG, QD
     Route: 048
     Dates: start: 20110929
  95. SEROQUEL [Concomitant]
     Dosage: 1.5 DF, QD
     Dates: start: 20111212
  96. SEROQUEL [Concomitant]
     Dosage: 1.5 DF, QD
     Dates: start: 20120613
  97. SEROQUEL [Concomitant]
     Dosage: 1.5 DF, QD
     Dates: start: 20121227
  98. SEROQUEL [Concomitant]
     Dosage: 1 DF, QD
     Dates: start: 20130115
  99. SEROQUEL [Concomitant]
     Dosage: 1 DF, QD
     Dates: start: 20130418
  100. SEROQUEL [Concomitant]
     Dosage: 1 DF, QD
     Dates: start: 20130718
  101. SEROQUEL [Concomitant]
     Dosage: 1 DF, QD
     Dates: start: 20131015
  102. SEROQUEL [Concomitant]
     Dosage: 1 DF, QD
     Dates: start: 20140116
  103. ETODOLAC [Concomitant]
     Indication: ARTHRITIS
     Dosage: 1 DF, BID
     Dates: start: 20120612, end: 20121109
  104. ANAPROX DS [Concomitant]
     Indication: ARTHRALGIA
     Dosage: 1 DF, TID
     Dates: start: 20121107, end: 20130121
  105. DOXYCYCLINE HYCLATE [Concomitant]
     Dosage: 1 DF, BID
     Route: 048
     Dates: start: 20121218, end: 20130102
  106. NYSTATIN [Concomitant]
     Indication: GENITAL RASH
     Dosage: UNK UKN, TID
     Route: 061
     Dates: start: 20121221, end: 20130120
  107. SULFAMETHOXAZOLE AND TRIMETHOPRIM [Concomitant]
     Indication: URINARY TRACT INFECTION
     Dosage: 1 DF, BID
     Route: 048
     Dates: start: 20130104, end: 20130119
  108. NAPROXEN SODIUM [Concomitant]
     Indication: ARTHRALGIA
     Dosage: 1 DF, TID
     Dates: start: 20130208
  109. NAPROXEN SODIUM [Concomitant]
     Dosage: 1 DF, TID
     Dates: start: 20130412, end: 20130611
  110. NAPROXEN SODIUM [Concomitant]
     Dosage: 1 DF, TID
     Dates: start: 20130618, end: 20130817
  111. NAPROXEN SODIUM [Concomitant]
     Dosage: 1 DF, TID
     Dates: start: 20130905, end: 20131104
  112. NAPROXEN SODIUM [Concomitant]
     Dosage: 1 DF, TID
     Dates: start: 20131030
  113. NAPROXEN SODIUM [Concomitant]
     Dosage: 1 DF, TID
     Dates: start: 20131230
  114. NAPROXEN SODIUM [Concomitant]
     Dosage: 1 DF, TID
     Dates: start: 20140304
  115. CYANOCOBALAMIN [Concomitant]
     Dosage: 1 ML, QW
     Route: 030
     Dates: start: 20130308, end: 20130706
  116. JANUVIA [Concomitant]
     Dosage: 100 MG, QD
     Dates: start: 20130826, end: 20130923

REACTIONS (8)
  - Cerebrovascular accident [Unknown]
  - Faecal incontinence [Unknown]
  - Urinary incontinence [Unknown]
  - Dysarthria [Unknown]
  - Fall [Unknown]
  - Hallucination [Unknown]
  - Gait disturbance [Unknown]
  - Asthenia [Unknown]
